FAERS Safety Report 19835509 (Version 1)
Quarter: 2021Q3

REPORT INFORMATION
  Report Type: Spontaneous
  Country: US (occurrence: US)
  Receive Date: 20210914
  Receipt Date: 20210914
  Transmission Date: 20211014
  Serious: No
  Sender: FDA-Public Use
  Company Number: NVSC2021US207601

PATIENT

DRUGS (2)
  1. CAPMATINIB [Suspect]
     Active Substance: CAPMATINIB
     Dosage: 200 MG, BID
     Route: 048
  2. CAPMATINIB [Suspect]
     Active Substance: CAPMATINIB
     Indication: NON-SMALL CELL LUNG CANCER
     Dosage: 400 MG, BID
     Route: 048

REACTIONS (2)
  - Vomiting [Recovering/Resolving]
  - Nausea [Recovering/Resolving]
